FAERS Safety Report 5421032-0 (Version None)
Quarter: 2007Q3

REPORT INFORMATION
  Report Type: 
  Country: None (occurrence: None)
  Receive Date: 20070821
  Receipt Date: 20070814
  Transmission Date: 20080115
  Serious: Yes (Other)
  Sender: FDA-Public Use
  Company Number: A0666820A

PATIENT
  Age: 43 Year
  Sex: Female
  Weight: 75.9 kg

DRUGS (4)
  1. TYKERB [Suspect]
     Dosage: 1250MG PER DAY
     Route: 048
     Dates: start: 20070501, end: 20070717
  2. ZYPREXA [Concomitant]
     Dosage: 10MG UNKNOWN
     Route: 048
  3. CALCIUM CHLORIDE [Concomitant]
     Route: 048
  4. VITAMIN D [Concomitant]
     Route: 048

REACTIONS (3)
  - BLOOD BILIRUBIN INCREASED [None]
  - DIARRHOEA [None]
  - TRANSAMINASES INCREASED [None]
